FAERS Safety Report 4437280-2 (Version None)
Quarter: 2004Q3

REPORT INFORMATION
  Report Type: 
  Country: None (occurrence: None)
  Receive Date: 20040726
  Receipt Date: 20040512
  Transmission Date: 20050211
  Serious: No
  Sender: FDA-Public Use
  Company Number: USA040363376

PATIENT
  Age: 77 Year
  Sex: Female

DRUGS (8)
  1. FORTEO [Suspect]
     Indication: OSTEOPOROSIS
     Dosage: 20 UG DAY
     Dates: start: 20040101
  2. DAYPRO [Concomitant]
  3. PLAQUENIL [Concomitant]
  4. LANOXIN [Concomitant]
  5. TOPROL-XL [Concomitant]
  6. REMICADE [Concomitant]
  7. VIBRAMYCIN [Concomitant]
  8. METHOTREXATE [Concomitant]

REACTIONS (3)
  - BLOOD PRESSURE INCREASED [None]
  - FAECES DISCOLOURED [None]
  - LOOSE STOOLS [None]
